FAERS Safety Report 5445676-5 (Version None)
Quarter: 2007Q3

REPORT INFORMATION
  Report Type: 
  Country: None (occurrence: None)
  Receive Date: 20070904
  Receipt Date: 20070822
  Transmission Date: 20080115
  Serious: Yes (Other)
  Sender: FDA-Public Use
  Company Number: CHPA2007US09032

PATIENT
  Sex: Male

DRUGS (3)
  1. EX-LAX REG STR CHOCOLATED LAX PCS SEN (NCH)(SENNA GLYCOSIDES (CA SALTS [Suspect]
     Indication: DIARRHOEA
     Dosage: 15 MG, ONCE/SINGLE, ORAL
     Route: 048
     Dates: start: 20070816, end: 20070816
  2. VICODIN [Suspect]
     Dosage: PRN, ORAL
     Route: 048
     Dates: start: 20070815, end: 20070820
  3. EXCEDRIN (MIGRAINE) [Concomitant]

REACTIONS (1)
  - DIARRHOEA [None]
